FAERS Safety Report 8201903-2 (Version None)
Quarter: 2012Q1

REPORT INFORMATION
  Report Type: 
  Country: None (occurrence: None)
  Receive Date: 20120312
  Receipt Date: 20120301
  Transmission Date: 20120608
  Serious: Yes (Hospitalization, Other)
  Sender: FDA-Public Use
  Company Number: ES-BRISTOL-MYERS SQUIBB COMPANY-16366775

PATIENT
  Sex: Male

DRUGS (1)
  1. SPRYCEL [Suspect]
     Indication: CHRONIC MYELOID LEUKAEMIA
     Route: 048

REACTIONS (9)
  - PYREXIA [None]
  - HYPERTENSION [None]
  - HEADACHE [None]
  - RESPIRATORY DISTRESS [None]
  - PULMONARY ARTERIAL HYPERTENSION [None]
  - ASPHYXIA [None]
  - MYALGIA [None]
  - FACE OEDEMA [None]
  - INFLUENZA [None]
